FAERS Safety Report 18393011 (Version 2)
Quarter: 2020Q4

REPORT INFORMATION
  Report Type: Spontaneous
  Country: US (occurrence: US)
  Receive Date: 20201016
  Receipt Date: 20201020
  Transmission Date: 20210114
  Serious: Yes (Hospitalization)
  Sender: FDA-Public Use
  Company Number: US-PFIZER INC-2020396426

PATIENT
  Age: 56 Year
  Sex: Male

DRUGS (4)
  1. DIAZEPAM. [Suspect]
     Active Substance: DIAZEPAM
     Indication: INSOMNIA
     Dosage: UNK (160-250 MG DAY OF BENZODIAZEPINES USED, WITH 18-24 LENGTH OF HEAVY USE )
     Route: 048
  2. DIAZEPAM. [Suspect]
     Active Substance: DIAZEPAM
     Indication: ANXIETY
     Dosage: UNK (INTAKE OF 70 TO 100 MG, DURING THE PAST 18 TO 24 MONTHS)
     Route: 048
  3. FLURAZEPAM HYDROCHLORIDE. [Suspect]
     Active Substance: FLURAZEPAM HYDROCHLORIDE
     Indication: ANXIETY
     Dosage: UNK (90 TO 150 MG DURING THE PAST 18 TO 24 MONTHS)
     Route: 048
  4. FLURAZEPAM HYDROCHLORIDE. [Suspect]
     Active Substance: FLURAZEPAM HYDROCHLORIDE
     Indication: INSOMNIA
     Dosage: 30 MG
     Route: 048

REACTIONS (3)
  - Rebound psychosis [Recovered/Resolved]
  - Depression [Unknown]
  - Drug dependence [Unknown]
